FAERS Safety Report 12482503 (Version 1)
Quarter: 2016Q2

REPORT INFORMATION
  Report Type: Spontaneous
  Country: US (occurrence: US)
  Receive Date: 20160620
  Receipt Date: 20160620
  Transmission Date: 20160815
  Serious: No
  Sender: FDA-Public Use
  Company Number: US-TEVA-666566USA

PATIENT
  Sex: Female

DRUGS (21)
  1. MS CONTIN [Concomitant]
     Active Substance: MORPHINE SULFATE
  2. TIZANIDINE. [Concomitant]
     Active Substance: TIZANIDINE
  3. PROPRANOLOL [Concomitant]
     Active Substance: PROPRANOLOL\PROPRANOLOL HYDROCHLORIDE
  4. TEMAZEPAM. [Concomitant]
     Active Substance: TEMAZEPAM
  5. NORCO [Concomitant]
     Active Substance: ACETAMINOPHEN\HYDROCODONE BITARTRATE
  6. COPAXONE [Suspect]
     Active Substance: GLATIRAMER ACETATE
     Indication: MULTIPLE SCLEROSIS
     Route: 058
  7. GABAPENTIN. [Concomitant]
     Active Substance: GABAPENTIN
  8. CLONAZEPAM. [Concomitant]
     Active Substance: CLONAZEPAM
  9. COUMADIN [Concomitant]
     Active Substance: WARFARIN SODIUM
  10. PHENAZOPYRIDINE. [Concomitant]
     Active Substance: PHENAZOPYRIDINE
  11. SUMATRIPTAN. [Concomitant]
     Active Substance: SUMATRIPTAN
  12. REGLAN [Concomitant]
     Active Substance: METOCLOPRAMIDE HYDROCHLORIDE
  13. PROMETHAZINE [Concomitant]
     Active Substance: PROMETHAZINE\PROMETHAZINE HYDROCHLORIDE
  14. DIFLUCAN [Concomitant]
     Active Substance: FLUCONAZOLE
  15. BACLOFEN. [Concomitant]
     Active Substance: BACLOFEN
  16. METFORMIN [Concomitant]
     Active Substance: METFORMIN HYDROCHLORIDE
  17. PROTONIX [Concomitant]
     Active Substance: PANTOPRAZOLE SODIUM
  18. CETIRIZINE [Concomitant]
     Active Substance: CETIRIZINE HYDROCHLORIDE
  19. ONDANSETRON [Concomitant]
     Active Substance: ONDANSETRON
  20. AMITRIPTYLINE [Concomitant]
     Active Substance: AMITRIPTYLINE
  21. LACTULOSE. [Concomitant]
     Active Substance: LACTULOSE

REACTIONS (1)
  - Malaise [Unknown]

NARRATIVE: CASE EVENT DATE: 2016
